FAERS Safety Report 9536362 (Version 2)
Quarter: 2013Q3

REPORT INFORMATION
  Report Type: Report from Study
  Country: DE (occurrence: DE)
  Receive Date: 20130919
  Receipt Date: 20130919
  Transmission Date: 20140515
  Serious: Yes (Hospitalization)
  Sender: FDA-Public Use
  Company Number: DE-ASTELLAS-2012EU004252

PATIENT
  Age: 67 Year
  Sex: Female
  Weight: 64 kg

DRUGS (11)
  1. TACROLIMUS SYSTEMIC [Suspect]
     Indication: RENAL TRANSPLANT
     Dosage: 19 MG, UID/QD
     Route: 048
     Dates: start: 20120508
  2. TACROLIMUS SYSTEMIC [Suspect]
     Dosage: 15 MG, UID/QD
     Route: 048
     Dates: start: 20120613
  3. TACROLIMUS SYSTEMIC [Suspect]
     Dosage: 10 MG, UID/QD
     Route: 048
     Dates: start: 20120521
  4. MYCOPHENOLATE MOFETIL [Suspect]
     Indication: RENAL TRANSPLANT
     Dosage: 1000 MG, BID
     Route: 048
     Dates: start: 20120508
  5. BASILIXIMAB [Suspect]
     Indication: RENAL TRANSPLANT
     Dosage: 20 MG, UID/QD
     Route: 042
     Dates: start: 20120508
  6. PREDNISOLON /00016201/ [Suspect]
     Indication: RENAL TRANSPLANT
     Dosage: 25 MG, UID/QD
     Route: 048
     Dates: start: 20120508
  7. NORVASC [Concomitant]
     Dosage: 10 MG, UNKNOWN/D
     Route: 065
  8. MOLSIDOMIN [Concomitant]
     Dosage: 4 MG, UNKNOWN/D
     Route: 065
  9. ASS [Concomitant]
     Dosage: 100 MG, UNKNOWN/D
     Route: 065
  10. ISMN [Concomitant]
     Dosage: 40 MG, UNKNOWN/D
     Route: 065
  11. HEPARIN SODIUM [Concomitant]
     Dosage: UNK
     Route: 065
     Dates: end: 20120522

REACTIONS (2)
  - Urinary tract infection [Recovered/Resolved]
  - Thrombophlebitis superficial [Not Recovered/Not Resolved]
